FAERS Safety Report 15334657 (Version 1)
Quarter: 2018Q3

REPORT INFORMATION
  Report Type: Spontaneous
  Country: US (occurrence: US)
  Receive Date: 20180830
  Receipt Date: 20180830
  Transmission Date: 20181010
  Serious: Yes (Other)
  Sender: FDA-Public Use
  Company Number: US-009507513-1808USA009076

PATIENT
  Age: 62 Year
  Sex: Male

DRUGS (5)
  1. REMERON [Suspect]
     Active Substance: MIRTAZAPINE
     Indication: DEPRESSION
     Dosage: 60 MG, UNK
     Route: 048
     Dates: start: 2008, end: 2014
  2. XANAX [Suspect]
     Active Substance: ALPRAZOLAM
     Dosage: 0.5 MG, BID
     Route: 048
  3. XANAX [Suspect]
     Active Substance: ALPRAZOLAM
     Dosage: 0.25 MG, TID
     Route: 048
     Dates: start: 2013
  4. REMERON [Suspect]
     Active Substance: MIRTAZAPINE
     Dosage: TAPERED FROM 60 MG DOWN TO 45 MG, 30 MG, 15 MG, 7,5 MG OVER A 2 PLUS YEAR PERIOD
     Dates: start: 2014, end: 201803
  5. XANAX [Suspect]
     Active Substance: ALPRAZOLAM
     Indication: ANXIETY
     Dosage: 0.25 MG, TID, ON AND OFF
     Route: 048
     Dates: start: 2007, end: 2010

REACTIONS (8)
  - Anxiety [Unknown]
  - Incorrect dose administered [Unknown]
  - Dizziness [Unknown]
  - Somnolence [Unknown]
  - Drug dependence [Not Recovered/Not Resolved]
  - Speech disorder [Unknown]
  - Seizure [Recovered/Resolved]
  - Product use issue [Unknown]

NARRATIVE: CASE EVENT DATE: 2018
